FAERS Safety Report 6553867-5 (Version None)
Quarter: 2010Q1

REPORT INFORMATION
  Report Type: 
  Country: None (occurrence: None)
  Receive Date: 20100127
  Receipt Date: 20100119
  Transmission Date: 20100710
  Serious: Yes (Other)
  Sender: FDA-Public Use
  Company Number: JP-ROCHE-673650

PATIENT
  Sex: Male

DRUGS (5)
  1. AVASTIN [Suspect]
     Indication: LARGE INTESTINE CARCINOMA
     Dosage: NOTE: UNCERTAINITY
     Route: 041
  2. ELPLAT [Concomitant]
     Dosage: NOTE: UNCERTAINITY
     Route: 041
  3. 5-FU [Concomitant]
     Dosage: FORM: INTRAVENOUS BOLUS, NOTE: UNCERTAINITY
     Route: 042
  4. 5-FU [Concomitant]
     Dosage: FORM: INTRAVENOUS DRIP, NOTE: UNCERTAINITY
     Route: 042
  5. LEVOFOLINATE [Concomitant]
     Dosage: NOTE: UNCERTAINITY
     Route: 041

REACTIONS (2)
  - GASTROINTESTINAL PERFORATION [None]
  - PERITONITIS [None]
